FAERS Safety Report 17577213 (Version 1)
Quarter: 2020Q1

REPORT INFORMATION
  Report Type: Spontaneous
  Country: US (occurrence: US)
  Receive Date: 20200324
  Receipt Date: 20200324
  Transmission Date: 20200409
  Serious: Yes (Other)
  Sender: FDA-Public Use
  Company Number: None

PATIENT
  Age: 32 Year
  Sex: Female
  Weight: 61.2 kg

DRUGS (7)
  1. OZEMPIC [Suspect]
     Active Substance: SEMAGLUTIDE
     Indication: BLOOD GLUCOSE FLUCTUATION
     Dosage: ?          OTHER FREQUENCY:WEEKLY;OTHER ROUTE:INJECT INTO BELLY?
  2. METFAAMORIN [Concomitant]
  3. PHENTRAMINE [Concomitant]
  4. TOMAMAX [Concomitant]
  5. OMEPRAZOLE. [Concomitant]
     Active Substance: OMEPRAZOLE
  6. ZYRTEC [Concomitant]
     Active Substance: CETIRIZINE HYDROCHLORIDE
  7. OZEMPIC [Concomitant]
     Active Substance: SEMAGLUTIDE

REACTIONS (4)
  - Nausea [None]
  - Malaise [None]
  - Cervicitis [None]
  - Constipation [None]

NARRATIVE: CASE EVENT DATE: 20200323
